FAERS Safety Report 5663648-2 (Version None)
Quarter: 2008Q1

REPORT INFORMATION
  Report Type: 
  Country: None (occurrence: None)
  Receive Date: 20080313
  Receipt Date: 20080225
  Transmission Date: 20080703
  Serious: Yes (Death)
  Sender: FDA-Public Use
  Company Number: ES-GENENTECH-257463

PATIENT

DRUGS (8)
  1. MABTHERA [Suspect]
     Indication: DIFFUSE LARGE B-CELL LYMPHOMA
     Dosage: 375 MG/M2, Q3W
     Route: 042
  2. CYCLOPHOSPHAMIDE [Concomitant]
     Indication: DIFFUSE LARGE B-CELL LYMPHOMA
     Dosage: 750 MG/M2, Q3W
     Route: 042
  3. DOXORUBICIN HCL [Concomitant]
     Indication: DIFFUSE LARGE B-CELL LYMPHOMA
     Dosage: 50 MG/M2, Q3W
     Route: 042
  4. VINCRISTINE [Concomitant]
     Indication: DIFFUSE LARGE B-CELL LYMPHOMA
     Dosage: UNK, Q3W
     Route: 042
  5. PREDNISONE TAB [Concomitant]
     Indication: DIFFUSE LARGE B-CELL LYMPHOMA
     Dosage: 40 MG/M2, QDX5D/21DC
     Route: 048
  6. CYTARABINE [Concomitant]
     Indication: PROPHYLAXIS
     Dosage: 40 MG, UNK
  7. HYDROCORTISONE [Concomitant]
     Indication: PROPHYLAXIS
     Dosage: 20 MG, UNK
  8. METHOTREXATE [Concomitant]
     Indication: PROPHYLAXIS
     Dosage: 12 MG, UNK

REACTIONS (1)
  - SUDDEN DEATH [None]
